FAERS Safety Report 7617982-7 (Version None)
Quarter: 2011Q3

REPORT INFORMATION
  Report Type: 
  Country: None (occurrence: None)
  Receive Date: 20110718
  Receipt Date: 20110705
  Transmission Date: 20111222
  Serious: Yes (Other)
  Sender: FDA-Public Use
  Company Number: PHHY2010US89125

PATIENT
  Sex: Female
  Weight: 55.329 kg

DRUGS (12)
  1. CALCIUM CARBONATE [Concomitant]
     Dosage: 500 MG, QD
     Route: 048
  2. ULTRAM [Concomitant]
     Dosage: 50 MG, Q6H
     Route: 048
  3. FENTANYL-100 [Concomitant]
     Dosage: UNK UKN, UNK
  4. STOOL SOFTENER [Concomitant]
     Dosage: UNK UKN, QD
     Route: 048
  5. VITAMIN D [Concomitant]
     Dosage: 1000 U, QD
     Route: 048
  6. METAMUCIL-2 [Concomitant]
     Dosage: UNK UKN, QD
     Route: 048
  7. RECLAST [Suspect]
     Dosage: 5 MG PER YEAR
     Route: 042
     Dates: start: 20101203
  8. VITAMIN TAB [Concomitant]
     Dosage: UNK UKN, UNK
  9. LOVAZA [Concomitant]
     Dosage: 1000 MG, QD
     Route: 048
  10. ONCE-A-DAY [Concomitant]
     Dosage: 1 DF, QD
     Route: 048
  11. ASPIRIN [Concomitant]
     Dosage: 81 MG, QD
     Route: 048
  12. TYLENOL-500 [Concomitant]
     Dosage: UNK UKN, UNK

REACTIONS (25)
  - FLUID RETENTION [None]
  - BACK PAIN [None]
  - NECK PAIN [None]
  - PHOTOPHOBIA [None]
  - INTRAOCULAR PRESSURE INCREASED [None]
  - JAW DISORDER [None]
  - JOINT STIFFNESS [None]
  - PAIN IN EXTREMITY [None]
  - FLATULENCE [None]
  - FEAR [None]
  - GLAUCOMA [None]
  - MUSCULOSKELETAL STIFFNESS [None]
  - ANXIETY [None]
  - ARTHRITIS [None]
  - OEDEMA PERIPHERAL [None]
  - ARTHRALGIA [None]
  - TOOTHACHE [None]
  - GAIT DISTURBANCE [None]
  - SOMNOLENCE [None]
  - PAIN IN JAW [None]
  - MASTICATION DISORDER [None]
  - MYALGIA [None]
  - INFLUENZA LIKE ILLNESS [None]
  - JOINT SWELLING [None]
  - CONSTIPATION [None]
